FAERS Safety Report 10197000 (Version 2)
Quarter: 2014Q2

REPORT INFORMATION
  Report Type: Report from Study
  Country: JP (occurrence: JP)
  Receive Date: 20140527
  Receipt Date: 20140613
  Transmission Date: 20141212
  Serious: Yes (Hospitalization, Disabling)
  Sender: FDA-Public Use
  Company Number: JP-B.I. PHARMACEUTICALS,INC./RIDGEFIELD-2014-BI-22005NB

PATIENT
  Age: 74 Year
  Sex: Female
  Weight: 48.3 kg

DRUGS (8)
  1. TRAZENTA [Suspect]
     Indication: TYPE 2 DIABETES MELLITUS
     Dosage: 5 MG
     Route: 048
     Dates: start: 20131108
  2. PREDONINE [Suspect]
     Indication: RHEUMATOID ARTHRITIS
     Dosage: 10 MG
     Route: 048
     Dates: start: 20140101
  3. BLOPRESS [Concomitant]
     Dosage: 8 MG
     Route: 048
  4. CRESTOR [Concomitant]
     Dosage: 2.5 MG
     Route: 048
  5. LASIX [Concomitant]
     Dosage: 40 MG
     Route: 048
  6. AMOBAN [Concomitant]
     Dosage: 7.5 MG
     Route: 048
  7. METGLUCO [Concomitant]
     Indication: TYPE 2 DIABETES MELLITUS
     Dosage: 500 MG
     Route: 048
     Dates: end: 20140111
  8. AMARYL [Concomitant]
     Indication: TYPE 2 DIABETES MELLITUS
     Dosage: 0.5 MG
     Route: 048
     Dates: end: 20140131

REACTIONS (2)
  - Rheumatoid arthritis [Recovered/Resolved with Sequelae]
  - Diabetes mellitus [Recovered/Resolved]
